FAERS Safety Report 6099340-2 (Version None)
Quarter: 2009Q1

REPORT INFORMATION
  Report Type: 
  Country: None (occurrence: None)
  Receive Date: 20090303
  Receipt Date: 20090218
  Transmission Date: 20090719
  Serious: Yes (Disabling, Other)
  Sender: FDA-Public Use
  Company Number: GB-PFIZER INC-2008089516

PATIENT

DRUGS (5)
  1. CHAMPIX [Suspect]
     Route: 048
     Dates: start: 20080819, end: 20081001
  2. MONTELUKAST [Concomitant]
     Route: 048
     Dates: start: 20061101
  3. PHYLLOCONTIN [Concomitant]
     Indication: CHRONIC OBSTRUCTIVE PULMONARY DISEASE
     Route: 048
     Dates: start: 20080707
  4. SALBUTAMOL [Concomitant]
     Indication: CHRONIC OBSTRUCTIVE PULMONARY DISEASE
     Route: 055
     Dates: start: 19970101
  5. SYMBICORT [Concomitant]
     Indication: CHRONIC OBSTRUCTIVE PULMONARY DISEASE
     Route: 055
     Dates: start: 20061101

REACTIONS (13)
  - ABNORMAL DREAMS [None]
  - AGGRESSION [None]
  - AGITATION [None]
  - DEPRESSED MOOD [None]
  - DEPRESSION [None]
  - MANIA [None]
  - NAUSEA [None]
  - NIGHTMARE [None]
  - PARANOIA [None]
  - SELF-INJURIOUS IDEATION [None]
  - TINNITUS [None]
  - VOMITING [None]
  - WITHDRAWAL SYNDROME [None]
